FAERS Safety Report 7082547-5 (Version None)
Quarter: 2010Q3

REPORT INFORMATION
  Report Type: 
  Country: None (occurrence: None)
  Receive Date: 20100929
  Receipt Date: 20100603
  Transmission Date: 20110219
  Serious: No
  Sender: FDA-Public Use
  Company Number: US-WYE-H15489510

PATIENT
  Sex: Male

DRUGS (2)
  1. PRISTIQ [Suspect]
     Dates: start: 20091201
  2. NUCYNTA [Suspect]
     Indication: PAIN
     Dates: start: 20100501

REACTIONS (4)
  - DRUG INTERACTION [None]
  - HEADACHE [None]
  - INSOMNIA [None]
  - LETHARGY [None]
